FAERS Safety Report 19886568 (Version 5)
Quarter: 2024Q4

REPORT INFORMATION
  Report Type: Report from Study
  Country: US (occurrence: US)
  Receive Date: 20210927
  Receipt Date: 20241210
  Transmission Date: 20250115
  Serious: Yes (Hospitalization)
  Sender: TAKEDA
  Company Number: US-TAKEDA-US201607317

PATIENT
  Age: 74 Year
  Sex: Female
  Weight: 58 kg

DRUGS (10)
  1. VELAGLUCERASE ALFA [Suspect]
     Active Substance: VELAGLUCERASE ALFA
     Indication: Gaucher^s disease
     Dosage: 60 INTERNATIONAL UNIT/KILOGRAM, Q2WEEKS
     Dates: start: 20100710, end: 201306
  2. VELAGLUCERASE ALFA [Suspect]
     Active Substance: VELAGLUCERASE ALFA
     Dosage: 60 INTERNATIONAL UNIT/KILOGRAM, Q2WEEKS
     Dates: start: 20140108, end: 2021
  3. OSCAL [Concomitant]
     Active Substance: CALCIUM CARBONATE
     Indication: Supplementation therapy
     Dosage: 500 MG, 2X/DAY:BID
     Dates: start: 20160612
  4. OSCAL [Concomitant]
     Active Substance: CALCIUM CARBONATE
     Indication: Cellulitis
  5. OSCAL [Concomitant]
     Active Substance: CALCIUM CARBONATE
     Indication: Skin ulcer
  6. OSCAL [Concomitant]
     Active Substance: CALCIUM CARBONATE
     Indication: Venous hypertension
  7. VANCOMYCIN [Concomitant]
     Active Substance: VANCOMYCIN
     Indication: Cellulitis
     Dosage: 1000 MILLIGRAM, BID
     Dates: start: 20160611
  8. UNASYN [Concomitant]
     Active Substance: AMPICILLIN SODIUM\SULBACTAM SODIUM
     Indication: Cellulitis
     Dosage: 10 DOSAGE FORM
     Dates: start: 20160611, end: 20160621
  9. UNASYN [Concomitant]
     Active Substance: AMPICILLIN SODIUM\SULBACTAM SODIUM
     Indication: Venous hypertension
  10. UNASYN [Concomitant]
     Active Substance: AMPICILLIN SODIUM\SULBACTAM SODIUM
     Indication: Skin ulcer

REACTIONS (3)
  - Cellulitis [Recovered/Resolved]
  - Stasis dermatitis [Recovered/Resolved]
  - Venous hypertension [Recovered/Resolved]

NARRATIVE: CASE EVENT DATE: 20160611
